FAERS Safety Report 8343050-5 (Version None)
Quarter: 2012Q2

REPORT INFORMATION
  Report Type: 
  Country: None (occurrence: None)
  Receive Date: 20120508
  Receipt Date: 20120426
  Transmission Date: 20120825
  Serious: Yes (Other)
  Sender: FDA-Public Use
  Company Number: PHHY2012EC038431

PATIENT
  Sex: Female

DRUGS (2)
  1. ZOLEDRONOC ACID [Suspect]
     Indication: OSTEOPOROSIS
     Dosage: 5MG/100ML , YEARLY
     Route: 042
     Dates: start: 20090701
  2. ZOLEDRONOC ACID [Suspect]
     Dosage: 5 MG/100 ML, YEARLY
     Route: 042
     Dates: start: 20110101

REACTIONS (2)
  - GENERAL PHYSICAL HEALTH DETERIORATION [None]
  - DIABETES MELLITUS [None]
